FAERS Safety Report 4730326-3 (Version None)
Quarter: 2005Q3

REPORT INFORMATION
  Report Type: 
  Country: None (occurrence: None)
  Receive Date: 20050728
  Receipt Date: 20050722
  Transmission Date: 20060218
  Serious: Yes (Hospitalization)
  Sender: FDA-Public Use
  Company Number: 200512277GDS

PATIENT
  Age: 87 Year
  Sex: Male

DRUGS (5)
  1. ASPIRIN [Suspect]
     Dosage: 100 MG, TOTAL DAILY, ORAL
     Route: 048
     Dates: end: 20050609
  2. ACENOCOUMAROL [Suspect]
     Dosage: ORAL
     Route: 048
     Dates: end: 20050609
  3. CARVEDILOL [Concomitant]
  4. TORSEMIDE [Concomitant]
  5. ENALAPRIL [Concomitant]

REACTIONS (1)
  - SUBARACHNOID HAEMORRHAGE [None]
